FAERS Safety Report 10045374 (Version 2)
Quarter: 2014Q2

REPORT INFORMATION
  Report Type: Report from Study
  Country: DE (occurrence: DE)
  Receive Date: 20140328
  Receipt Date: 20140521
  Transmission Date: 20141212
  Serious: Yes (Death)
  Sender: FDA-Public Use
  Company Number: DE-CELGENEUS-062-50794-14032691

PATIENT
  Age: 88 Year
  Sex: Male
  Weight: 74 kg

DRUGS (9)
  1. VIDAZA [Suspect]
     Indication: CHRONIC MYELOMONOCYTIC LEUKAEMIA
     Route: 058
     Dates: start: 20130527, end: 20140214
  2. ACETYLSALICYLIC ACID [Concomitant]
     Indication: CORONARY ARTERY DISEASE
     Route: 065
  3. FUROSEMIDE [Concomitant]
     Indication: POLYURIA
     Route: 065
  4. RANITIDINE [Concomitant]
     Indication: PROPHYLAXIS
     Route: 065
  5. NEPHROTRANS [Concomitant]
     Indication: PROPHYLAXIS
     Dosage: 5040 MILLIGRAM
     Route: 065
  6. NEPHROTRANS [Concomitant]
     Indication: RENAL FAILURE
  7. ABSEAMED [Concomitant]
     Indication: RENAL FAILURE
     Dosage: 5000 IU (INTERNATIONAL UNIT)
     Route: 065
  8. CALCITRIOL [Concomitant]
     Indication: PROPHYLAXIS
     Dosage: .25 MICROGRAM
     Route: 065
  9. CALCITRIOL [Concomitant]
     Indication: RENAL FAILURE

REACTIONS (1)
  - Death [Fatal]
